FAERS Safety Report 8151576-2 (Version None)
Quarter: 2012Q1

REPORT INFORMATION
  Report Type: 
  Country: None (occurrence: None)
  Receive Date: 20120220
  Receipt Date: 20120213
  Transmission Date: 20120608
  Serious: Yes (Disabling)
  Sender: FDA-Public Use
  Company Number: GB-ROCHE-1041226

PATIENT
  Sex: Female

DRUGS (7)
  1. STATIN (UNK INGREDIENTS) [Concomitant]
  2. FUROSEMIDE [Concomitant]
  3. LISINOPRIL [Concomitant]
  4. LEVOTHYROXINE SODIUM [Concomitant]
  5. VENTOLIN [Concomitant]
  6. ISOSORBIDE DINITRATE [Concomitant]
  7. LUCENTIS [Suspect]
     Indication: AGE-RELATED MACULAR DEGENERATION
     Route: 050
     Dates: start: 20091203

REACTIONS (4)
  - ASTHENIA [None]
  - GENERAL PHYSICAL HEALTH DETERIORATION [None]
  - MALAISE [None]
  - VISUAL ACUITY REDUCED [None]
